FAERS Safety Report 5473403-4 (Version None)
Quarter: 2007Q3

REPORT INFORMATION
  Report Type: 
  Country: None (occurrence: None)
  Receive Date: 20070824
  Receipt Date: 20070524
  Transmission Date: 20080115
  Serious: Yes (Life-Threatening, Hospitalization)
  Sender: FDA-Public Use
  Company Number: WAES 0705USA05133

PATIENT
  Age: 86 Year
  Sex: Male
  Weight: 50.8029 kg

DRUGS (10)
  1. VYTORIN [Suspect]
     Indication: HYPERCHOLESTEROLAEMIA
     Dosage: 10-80 MG/DAILY/PO
     Route: 048
     Dates: start: 20060601, end: 20061221
  2. ADVAIR DISKUS 100/50 [Concomitant]
  3. ALTACE [Concomitant]
  4. COMBIVENT [Concomitant]
  5. COREG [Concomitant]
  6. FLOMAX (MORNIFLUMATE) [Concomitant]
  7. NORVASC [Concomitant]
  8. PROSCAR [Concomitant]
  9. AMIODARONE [Concomitant]
  10. ASPIRIN [Concomitant]

REACTIONS (4)
  - ALANINE AMINOTRANSFERASE INCREASED [None]
  - ASPARTATE AMINOTRANSFERASE INCREASED [None]
  - BLOOD CREATINE PHOSPHOKINASE INCREASED [None]
  - MYALGIA [None]
